FAERS Safety Report 23417211 (Version 4)
Quarter: 2024Q1

REPORT INFORMATION
  Report Type: Spontaneous
  Country: US (occurrence: US)
  Receive Date: 20240118
  Receipt Date: 20240216
  Transmission Date: 20240410
  Serious: Yes (Other)
  Sender: FDA-Public Use
  Company Number: US-SA-SAC20240111002052

PATIENT
  Age: 42 Year
  Sex: Female

DRUGS (4)
  1. DUPIXENT [Suspect]
     Active Substance: DUPILUMAB
     Indication: Asthma
     Dosage: 300 MG, QOW
     Route: 058
  2. DUPIXENT [Suspect]
     Active Substance: DUPILUMAB
     Indication: Chronic inflammatory demyelinating polyradiculoneuropathy
  3. DUPIXENT [Suspect]
     Active Substance: DUPILUMAB
     Indication: Post-acute COVID-19 syndrome
  4. GAMMAGARD [Suspect]
     Active Substance: HUMAN IMMUNOGLOBULIN G
     Dosage: UNK
     Route: 042

REACTIONS (24)
  - Loss of consciousness [Unknown]
  - Impaired gastric emptying [Unknown]
  - Nausea [Unknown]
  - Vomiting [Unknown]
  - Fatigue [Unknown]
  - Pain [Unknown]
  - Musculoskeletal stiffness [Unknown]
  - Decreased appetite [Unknown]
  - Spinal pain [Unknown]
  - Back pain [Unknown]
  - Flushing [Unknown]
  - Diarrhoea [Unknown]
  - Migraine [Unknown]
  - Respiratory tract congestion [Unknown]
  - Respiratory disorder [Unknown]
  - Headache [Unknown]
  - Throat irritation [Unknown]
  - Throat tightness [Unknown]
  - Infusion site haemorrhage [Unknown]
  - Pain of skin [Unknown]
  - Vision blurred [Unknown]
  - Pruritus [Unknown]
  - Asthma [Unknown]
  - Product use in unapproved indication [Unknown]

NARRATIVE: CASE EVENT DATE: 20240104
